FAERS Safety Report 9074742 (Version 2)
Quarter: 2013Q1

REPORT INFORMATION
  Report Type: Spontaneous
  Country: FR (occurrence: FR)
  Receive Date: 20130129
  Receipt Date: 20130131
  Transmission Date: 20140127
  Serious: Yes (Other)
  Sender: FDA-Public Use
  Company Number: FR-TEVA-381516ISR

PATIENT
  Age: 28 None
  Sex: Female
  Weight: 60 kg

DRUGS (2)
  1. ISOTRETINOIN [Suspect]
     Indication: ACNE
     Dosage: 20 MILLIGRAM DAILY;
     Route: 048
     Dates: start: 20121101, end: 20121210
  2. ISOTRETINOIN [Suspect]
     Dosage: .8 MG/KG DAILY; AT THE END OF THE TREATMENT
     Route: 048

REACTIONS (7)
  - Abortion induced [Recovered/Resolved with Sequelae]
  - Self-medication [Unknown]
  - Acne [None]
  - Disease recurrence [None]
  - Unwanted pregnancy [None]
  - Exposure during pregnancy [None]
  - Intentional drug misuse [None]
